FAERS Safety Report 9845427 (Version 3)
Quarter: 2014Q1

REPORT INFORMATION
  Report Type: Spontaneous
  Country: US (occurrence: US)
  Receive Date: 20140127
  Receipt Date: 20140324
  Transmission Date: 20141002
  Serious: Yes (Death, Hospitalization, Other)
  Sender: FDA-Public Use
  Company Number: US-CELGENEUS-163-21880-14013803

PATIENT
  Age: 75 Year
  Sex: Male

DRUGS (6)
  1. REVLIMID [Suspect]
     Indication: PLASMA CELL MYELOMA
     Dosage: 25 MILLIGRAM
     Route: 048
     Dates: start: 20110302, end: 20111214
  2. REVLIMID [Suspect]
     Dosage: 25 MILLIGRAM
     Route: 048
     Dates: start: 201306, end: 201309
  3. REVLIMID [Suspect]
     Dosage: 15 MILLIGRAM
     Route: 048
     Dates: start: 20130930, end: 20131118
  4. DEXAMETHASONE [Concomitant]
     Indication: PLASMA CELL MYELOMA
     Route: 065
  5. DEXAMETHASONE [Concomitant]
     Route: 065
     Dates: end: 201102
  6. DEXAMETHASONE [Concomitant]
     Route: 048
     Dates: start: 20110302, end: 20131028

REACTIONS (4)
  - Plasma cell myeloma [Fatal]
  - Haemoglobin decreased [Recovered/Resolved]
  - Lung squamous cell carcinoma stage III [Unknown]
  - Pancytopenia [Recovered/Resolved]
